FAERS Safety Report 23027647 (Version 3)
Quarter: 2023Q4

REPORT INFORMATION
  Report Type: Spontaneous
  Country: US (occurrence: US)
  Receive Date: 20231004
  Receipt Date: 20231129
  Transmission Date: 20240110
  Serious: No
  Sender: FDA-Public Use
  Company Number: US-BIOGEN-2023BI01217865

PATIENT
  Age: 36 Year
  Sex: Female

DRUGS (2)
  1. VUMERITY [Suspect]
     Active Substance: DIROXIMEL FUMARATE
     Indication: Multiple sclerosis
     Route: 050
     Dates: start: 20230707, end: 20230713
  2. VUMERITY [Suspect]
     Active Substance: DIROXIMEL FUMARATE
     Route: 050
     Dates: start: 20230714

REACTIONS (9)
  - Product dose omission in error [Unknown]
  - Product dose omission issue [Unknown]
  - Rash erythematous [Recovered/Resolved]
  - Thyroid disorder [Unknown]
  - Hypoaesthesia [Unknown]
  - Hot flush [Unknown]
  - Burning sensation [Recovered/Resolved]
  - Pruritus [Recovered/Resolved]
  - Erythema [Recovered/Resolved]

NARRATIVE: CASE EVENT DATE: 20230701
